FAERS Safety Report 4617051-4 (Version None)
Quarter: 2005Q1

REPORT INFORMATION
  Report Type: 
  Country: None (occurrence: None)
  Receive Date: 20050323
  Receipt Date: 20050312
  Transmission Date: 20050727
  Serious: Yes (Other)
  Sender: FDA-Public Use
  Company Number: PHEH2005US03154

PATIENT
  Age: 78 Year
  Sex: Female
  Weight: 59 kg

DRUGS (10)
  1. TOPROL-XL [Concomitant]
     Indication: HYPERTENSION
     Dosage: UNK, UNK
     Dates: end: 20050303
  2. TOPROL-XL [Concomitant]
     Dosage: 25 MG DAILY
     Dates: start: 20050304
  3. SYNTHROID [Concomitant]
     Indication: HYPOTHYROIDISM
     Dosage: 75 UNK, UNK
  4. ZOCOR [Concomitant]
     Indication: HYPERCHOLESTEROLAEMIA
     Dosage: UNK, UNK
  5. CELEBREX [Concomitant]
     Indication: ARTHRITIS
     Dosage: UNK, UNK
     Dates: start: 20041201
  6. ACTONEL [Concomitant]
     Indication: OSTEOPOROSIS
  7. POSTURE D [Concomitant]
     Indication: OSTEOPOROSIS
  8. MULTIVIT [Concomitant]
  9. DIOVAN [Suspect]
     Dosage: 160 MG, BID
     Route: 048
     Dates: start: 20031219
  10. DIOVAN [Suspect]
     Dosage: 80 MG, QD
     Route: 048
     Dates: start: 20030101, end: 20050304

REACTIONS (5)
  - ASTHENIA [None]
  - BLOOD SODIUM DECREASED [None]
  - FEELING JITTERY [None]
  - INSOMNIA [None]
  - LETHARGY [None]
